FAERS Safety Report 5085890-4 (Version None)
Quarter: 2006Q3

REPORT INFORMATION
  Report Type: 
  Country: None (occurrence: None)
  Receive Date: 20060817
  Receipt Date: 20060804
  Transmission Date: 20061208
  Serious: Yes (Hospitalization)
  Sender: FDA-Public Use
  Company Number: 2006BI011088

PATIENT
  Sex: Female

DRUGS (1)
  1. AVONEX [Suspect]
     Indication: DRUG USE FOR UNKNOWN INDICATION
     Dosage: IM
     Route: 030

REACTIONS (4)
  - BACK DISORDER [None]
  - HIP ARTHROPLASTY [None]
  - INTERVERTEBRAL DISC DISORDER [None]
  - POST PROCEDURAL COMPLICATION [None]
